FAERS Safety Report 4425401-7 (Version None)
Quarter: 2004Q3

REPORT INFORMATION
  Report Type: 
  Country: None (occurrence: None)
  Receive Date: 20040813
  Receipt Date: 20040719
  Transmission Date: 20050211
  Serious: Yes (Other)
  Sender: FDA-Public Use
  Company Number: GB-GLAXOSMITHKLINE-B0339481A

PATIENT
  Age: 55 Year
  Sex: Male

DRUGS (8)
  1. CEFUROXIME SODIUM [Suspect]
     Route: 042
     Dates: start: 20040716
  2. CLARITHROMYCIN [Concomitant]
     Route: 065
  3. AMLODIPINE [Concomitant]
     Route: 065
  4. ACETAMINOPHEN [Concomitant]
     Route: 065
  5. BISOPROLOL FUMARATE [Concomitant]
     Route: 065
  6. SODIUM NITROPRUSSIDE [Concomitant]
     Route: 065
  7. LABETALOL HCL [Concomitant]
     Route: 042
  8. ISOSORBIDE MONONITRATE [Concomitant]
     Route: 065

REACTIONS (2)
  - ALANINE AMINOTRANSFERASE INCREASED [None]
  - HYPERTENSION [None]
